FAERS Safety Report 17750119 (Version 1)
Quarter: 2020Q2

REPORT INFORMATION
  Report Type: Spontaneous
  Country: DE (occurrence: DE)
  Receive Date: 20200506
  Receipt Date: 20200506
  Transmission Date: 20200714
  Serious: Yes (Death, Hospitalization, Other)
  Sender: FDA-Public Use
  Company Number: DE-TEVA-2020-DE-1227359

PATIENT
  Age: 76 Year
  Sex: Female
  Weight: 100 kg

DRUGS (8)
  1. LERCANIDIPIN 20 MG [Concomitant]
     Dosage: 20 MILLIGRAM DAILY; 0-1-0
     Route: 048
  2. ASS 100 [Concomitant]
     Active Substance: ASPIRIN
     Dosage: 100 MILLIGRAM DAILY; 1-0-0
     Route: 048
  3. TORASEMID 10 MG [Interacting]
     Active Substance: TORSEMIDE
     Dosage: 1-1-0
     Route: 048
  4. NEBIVOLOL HYDROCHLORIDE 5 MG [Concomitant]
     Dosage: 5 MILLIGRAM DAILY; 1-0-0
     Route: 048
  5. MOXONIDIN 0.3 MG [Concomitant]
     Dosage: .6 MILLIGRAM DAILY; 1-0-1
     Route: 048
  6. METFORMIN [Suspect]
     Active Substance: METFORMIN HYDROCHLORIDE
     Indication: TYPE 2 DIABETES MELLITUS
     Dosage: 1000 MILLIGRAM DAILY;
     Route: 048
  7. LEVOTHYROXINE SODIUM 88 UG [Concomitant]
     Dosage: 88 MICROGRAM DAILY; 1-0-0
     Route: 048
  8. CANDESARTAN 8 MG [Concomitant]
     Active Substance: CANDESARTAN
     Dosage: 8 MILLIGRAM DAILY; 1-0-0
     Route: 048

REACTIONS (3)
  - Abdominal pain upper [Unknown]
  - Lactic acidosis [Fatal]
  - Drug interaction [Unknown]

NARRATIVE: CASE EVENT DATE: 20200331
